FAERS Safety Report 6617761-3 (Version None)
Quarter: 2010Q1

REPORT INFORMATION
  Report Type: 
  Country: None (occurrence: None)
  Receive Date: 20100308
  Receipt Date: 20100226
  Transmission Date: 20100710
  Serious: Yes (Other)
  Sender: FDA-Public Use
  Company Number: PHHY2010DE11803

PATIENT
  Age: 26 Year
  Sex: Male

DRUGS (1)
  1. LEPONEX [Suspect]
     Dosage: 150 MG IN EVENING
     Route: 048
     Dates: start: 20030101

REACTIONS (3)
  - INFERTILITY MALE [None]
  - SPERM COUNT DECREASED [None]
  - SPERMATOZOA PROGRESSIVE MOTILITY DECREASED [None]
